FAERS Safety Report 23249954 (Version 1)
Quarter: 2023Q4

REPORT INFORMATION
  Report Type: Spontaneous
  Country: GB (occurrence: GB)
  Receive Date: 20231201
  Receipt Date: 20231201
  Transmission Date: 20240109
  Serious: Yes (Other)
  Sender: FDA-Public Use
  Company Number: GB-002147023-NVSC2023GB251848

PATIENT
  Sex: Female

DRUGS (1)
  1. ESTRADIOL [Suspect]
     Active Substance: ESTRADIOL
     Indication: Product used for unknown indication
     Dosage: 25 MICROGRAMS/24 HOURS, (STRENGTH: .25)
     Route: 065

REACTIONS (8)
  - Suicidal ideation [Unknown]
  - Brain fog [Unknown]
  - Depressed mood [Unknown]
  - Apathy [Unknown]
  - Fatigue [Unknown]
  - Arthralgia [Unknown]
  - Irritability [Unknown]
  - Drug ineffective [Unknown]
